FAERS Safety Report 7917975-6 (Version None)
Quarter: 2011Q4

REPORT INFORMATION
  Report Type: 
  Country: None (occurrence: None)
  Receive Date: 20111114
  Receipt Date: 20110909
  Transmission Date: 20120403
  Serious: Yes (Other)
  Sender: FDA-Public Use
  Company Number: AUR-APL-2011-05015

PATIENT
  Age: 74 Year
  Sex: Male
  Weight: 70 kg

DRUGS (14)
  1. ISPAGHULA HUSK (PLANTAGO OVATA HUSK) [Concomitant]
  2. SIMVASTATIN [Concomitant]
  3. CETIRIZINE [Concomitant]
  4. DILTIAZEM HYDROCHLORIDE [Concomitant]
  5. AMITRIPTYLINE HYDROCHLORIDE [Concomitant]
  6. ASPIRIN [Concomitant]
  7. FLUOROURACIL [Concomitant]
  8. ACLOMETASONE DIPROPIONATE (ALCLOMETASONE DIPROPIONATE) [Concomitant]
  9. HYDROXOCOBALAMIN [Concomitant]
  10. RISEDRONATE SODIUM [Concomitant]
  11. LEVOTHYROXINE SODIUM [Concomitant]
  12. ACETAMINOPHEN [Concomitant]
  13. TRAMADOL HCL [Concomitant]
  14. RAMIPRIL [Suspect]
     Indication: PRODUCT USED FOR UNKNOWN INDICATION

REACTIONS (1)
  - RESTLESSNESS [None]
